FAERS Safety Report 4320036-9 (Version None)
Quarter: 2004Q1

REPORT INFORMATION
  Report Type: 
  Country: None (occurrence: None)
  Receive Date: 20040315
  Receipt Date: 20031230
  Transmission Date: 20041129
  Serious: No
  Sender: FDA-Public Use
  Company Number: 2004192558US

PATIENT
  Age: 74 Year
  Sex: Male

DRUGS (1)
  1. BEXTRA [Suspect]
     Indication: LIMB INJURY
     Dosage: 20 MG, QD
     Dates: start: 20031230, end: 20031230

REACTIONS (2)
  - ARTHRALGIA [None]
  - JOINT STIFFNESS [None]
